FAERS Safety Report 16905874 (Version 3)
Quarter: 2019Q4

REPORT INFORMATION
  Report Type: Report from Study
  Country: US (occurrence: US)
  Receive Date: 20191010
  Receipt Date: 20191029
  Transmission Date: 20200122
  Serious: Yes (Death, Life-Threatening, Hospitalization)
  Sender: FDA-Public Use
  Company Number: US-JNJFOC-20190903914

PATIENT
  Age: 63 Year
  Sex: Female
  Weight: 56.6 kg

DRUGS (22)
  1. PLACEBO [Suspect]
     Active Substance: UNSPECIFIED INGREDIENT
     Indication: CHRONIC GRAFT VERSUS HOST DISEASE
     Route: 065
     Dates: start: 20190307, end: 20190402
  2. PREDNISONE. [Suspect]
     Active Substance: PREDNISONE
     Indication: CHRONIC GRAFT VERSUS HOST DISEASE
     Dosage: 20 MG, QOD
     Route: 048
     Dates: start: 20190621
  3. ACYCLOVIR                          /00587301/ [Concomitant]
     Active Substance: ACYCLOVIR
     Dosage: 200 MG, QD
     Route: 048
  4. ELIQUIS [Concomitant]
     Active Substance: APIXABAN
     Dosage: 2.5 MG, Q 12 HOURS
     Route: 048
  5. ISAVUCONAZONIUM [Concomitant]
     Active Substance: ISAVUCONAZONIUM
     Dosage: 372 MG, QD
     Route: 048
  6. METOPROLOL SUCCINATE. [Concomitant]
     Active Substance: METOPROLOL SUCCINATE
     Dosage: 25 MG, QD
     Route: 048
  7. ONDANSETRON [Concomitant]
     Active Substance: ONDANSETRON
     Dosage: 8 MG, Q 12 HOURS, PRN
     Route: 048
  8. PANTOPRAZOLE [Concomitant]
     Active Substance: PANTOPRAZOLE
     Dosage: 40 MG, QD
     Route: 048
  9. PENICILLIN V POTASSIUM. [Concomitant]
     Active Substance: PENICILLIN V POTASSIUM
     Dosage: 500 MG, BID
     Route: 048
  10. DRISDOL [Concomitant]
     Active Substance: ERGOCALCIFEROL
     Dosage: 50000 IU, QD
     Route: 048
  11. MORPHINE [Concomitant]
     Active Substance: MORPHINE
     Dosage: 7.5 MG, QD, PRN
     Route: 048
  12. PROCHLORPERAZINE. [Concomitant]
     Active Substance: PROCHLORPERAZINE
     Dosage: 10 MG, QID, PRN
     Route: 048
  13. SODIUM BICARBONATE. [Concomitant]
     Active Substance: SODIUM BICARBONATE
     Dosage: 1300 MG, TID
     Route: 048
  14. PENTAMIDINE [Concomitant]
     Active Substance: PENTAMIDINE
     Dosage: 300 MG, Q MONTHLY
     Route: 055
  15. MAGNESIUM GLUCONATE [Concomitant]
     Active Substance: MAGNESIUM GLUCONATE
     Dosage: 500 MG, BID
     Route: 048
  16. RESTASIS [Concomitant]
     Active Substance: CYCLOSPORINE
     Dosage: 1 GTT, BOTH EYES, Q 12 HOURS
     Route: 047
  17. PLACEBO [Suspect]
     Active Substance: UNSPECIFIED INGREDIENT
     Route: 065
     Dates: start: 20190404, end: 20190901
  18. SYNTHROID [Concomitant]
     Active Substance: LEVOTHYROXINE SODIUM
     Dosage: 75 MCG, QD
     Route: 048
  19. ALBUTEROL                          /00139501/ [Concomitant]
     Active Substance: ALBUTEROL
     Dosage: 2PUFFS, SINGLE
     Route: 055
  20. ATIVAN [Concomitant]
     Active Substance: LORAZEPAM
     Dosage: 0.5 MG, QD
     Route: 048
  21. LIDODERM [Concomitant]
     Active Substance: LIDOCAINE
     Dosage: 5 %, 1 PATCH, QD
     Route: 061
  22. VANCOMYCIN [Concomitant]
     Active Substance: VANCOMYCIN
     Dosage: 125 MG, QD
     Route: 048

REACTIONS (4)
  - Atrial fibrillation [Recovered/Resolved]
  - Renal failure [Fatal]
  - Leukaemia recurrent [Not Recovered/Not Resolved]
  - Cardiac arrest [Recovered/Resolved]

NARRATIVE: CASE EVENT DATE: 20190829
